FAERS Safety Report 9403261 (Version 1)
Quarter: 2013Q3

REPORT INFORMATION
  Report Type: Spontaneous
  Country: IT (occurrence: IT)
  Receive Date: 20130716
  Receipt Date: 20130716
  Transmission Date: 20140515
  Serious: Yes (Hospitalization)
  Sender: FDA-Public Use
  Company Number: IT-TEVA-417575ISR

PATIENT
  Age: 52 Year
  Sex: Male

DRUGS (5)
  1. GABAPENTIN [Suspect]
     Indication: SUICIDE ATTEMPT
     Dosage: 30 GRAM DAILY;
     Route: 048
     Dates: start: 20130412, end: 20130412
  2. RAMIPRIL [Suspect]
     Indication: SUICIDE ATTEMPT
     Dosage: 2 GRAM DAILY;
     Route: 048
     Dates: start: 20130412, end: 20130412
  3. IBUPROFEN [Suspect]
     Indication: SUICIDE ATTEMPT
     Dosage: 1.8 GRAM DAILY;
     Route: 048
     Dates: start: 20130412, end: 20130412
  4. VOLTAREN 75MG [Suspect]
     Indication: SUICIDE ATTEMPT
     Dosage: 750 MILLIGRAM DAILY;
     Route: 048
     Dates: start: 20130412, end: 20130412
  5. NUROFEN [Suspect]
     Indication: SUICIDE ATTEMPT
     Dosage: 9 GRAM DAILY;
     Route: 048
     Dates: start: 20130412, end: 20130412

REACTIONS (4)
  - Intentional self-injury [Unknown]
  - Sopor [Unknown]
  - Drug abuse [Unknown]
  - Suicide attempt [None]
